FAERS Safety Report 8336470-6 (Version None)
Quarter: 2012Q2

REPORT INFORMATION
  Report Type: 
  Country: None (occurrence: None)
  Receive Date: 20120504
  Receipt Date: 20120424
  Transmission Date: 20120825
  Serious: Yes (Hospitalization)
  Sender: FDA-Public Use
  Company Number: FR-PFIZER INC-2012106670

PATIENT
  Age: 83 Year
  Sex: Male

DRUGS (7)
  1. ATORVASTATIN [Suspect]
     Indication: PRODUCT USED FOR UNKNOWN INDICATION
     Dosage: UNK
     Route: 048
     Dates: end: 20120315
  2. CANDESARTAN CILEXETIL [Concomitant]
     Dosage: UNK
  3. CANDESARTAN CILEXETIL [Concomitant]
     Dosage: UNK
     Dates: end: 20120315
  4. ZOLPIDEM TARTRATE [Concomitant]
     Dosage: UNK
  5. CORDARONE [Suspect]
     Indication: ATRIAL FIBRILLATION
     Dosage: UNK
     Route: 048
     Dates: end: 20120315
  6. LASIX [Concomitant]
     Dosage: UNK
     Dates: start: 20120301
  7. PREVISCAN [Suspect]
     Indication: PRODUCT USED FOR UNKNOWN INDICATION
     Dosage: 20 MG,UNK
     Route: 048
     Dates: end: 20120315

REACTIONS (3)
  - RESPIRATORY DISTRESS [None]
  - INTERSTITIAL LUNG DISEASE [None]
  - PLEURAL EFFUSION [None]
